FAERS Safety Report 24253220 (Version 2)
Quarter: 2024Q3

REPORT INFORMATION
  Report Type: Spontaneous
  Country: DE (occurrence: DE)
  Receive Date: 20240827
  Receipt Date: 20240913
  Transmission Date: 20241016
  Serious: Yes (Hospitalization, Other)
  Sender: BOEHRINGER INGELHEIM
  Company Number: DE-TEVA-VS-3234720

PATIENT
  Age: 55 Year
  Sex: Male

DRUGS (8)
  1. TELMISARTAN [Suspect]
     Active Substance: TELMISARTAN
     Indication: Hypertension
     Dosage: MORNING/ (DOSAGE: 2-0-0), APPROXIMATELY FOR 6 YEARS
     Route: 048
     Dates: end: 2023
  2. TELMISARTAN [Suspect]
     Active Substance: TELMISARTAN
     Dosage: MORNING/ (DOSAGE: 1-0-0)
     Route: 048
     Dates: start: 202408
  3. TELMISARTAN [Suspect]
     Active Substance: TELMISARTAN
     Dosage: MORNING/ (DOSAGE: 2-0-0), APPROXIMATELY FOR 6 YEARS
     Route: 048
     Dates: start: 2024
  4. SERTRALINE HYDROCHLORIDE [Suspect]
     Active Substance: SERTRALINE HYDROCHLORIDE
     Indication: Cluster headache
     Route: 065
     Dates: start: 20240811
  5. SERTRALINE HYDROCHLORIDE [Suspect]
     Active Substance: SERTRALINE HYDROCHLORIDE
     Dosage: 75 MG
     Route: 065
     Dates: start: 2024
  6. SERTRALINE HYDROCHLORIDE [Suspect]
     Active Substance: SERTRALINE HYDROCHLORIDE
     Route: 065
     Dates: start: 202405, end: 202408
  7. SERTRALINE HYDROCHLORIDE [Suspect]
     Active Substance: SERTRALINE HYDROCHLORIDE
     Route: 065
  8. URAPIDIL [Suspect]
     Active Substance: URAPIDIL
     Indication: Product used for unknown indication
     Route: 065

REACTIONS (11)
  - Erectile dysfunction [Unknown]
  - Skin laceration [Unknown]
  - Joint injury [Unknown]
  - Syncope [Recovered/Resolved]
  - Syncope [Recovered/Resolved]
  - Blood pressure fluctuation [Unknown]
  - Pulse abnormal [Unknown]
  - Fall [Unknown]
  - Vitreous floaters [Unknown]
  - Drug ineffective [Unknown]
  - Muscle spasms [Not Recovered/Not Resolved]

NARRATIVE: CASE EVENT DATE: 20240101
